FAERS Safety Report 21059681 (Version 6)
Quarter: 2023Q1

REPORT INFORMATION
  Report Type: Report from Study
  Country: US (occurrence: US)
  Receive Date: 20220708
  Receipt Date: 20230221
  Transmission Date: 20230417
  Serious: No
  Sender: FDA-Public Use
  Company Number: US-NOVARTISTESTPH-NVSC2022US155687

PATIENT
  Sex: Female

DRUGS (2)
  1. COSENTYX [Suspect]
     Active Substance: SECUKINUMAB
     Indication: Psoriasis
     Dosage: 300 MG, QW (QW FOR 5 WEEKS THEN QMO)
     Route: 058
     Dates: start: 202206
  2. COSENTYX [Suspect]
     Active Substance: SECUKINUMAB
     Dosage: 300 MG, 5TH LOADING DOSE
     Route: 058
     Dates: start: 20220629

REACTIONS (6)
  - Injection site reaction [Unknown]
  - Pruritus [Unknown]
  - Skin lesion [Unknown]
  - Skin plaque [Unknown]
  - Injection site inflammation [Recovered/Resolved]
  - Drug effect less than expected [Unknown]
